FAERS Safety Report 4987845-4 (Version None)
Quarter: 2006Q2

REPORT INFORMATION
  Report Type: 
  Country: None (occurrence: None)
  Receive Date: 20060427
  Receipt Date: 20060427
  Transmission Date: 20061013
  Serious: Yes (Life-Threatening)
  Sender: FDA-Public Use
  Company Number: None

PATIENT
  Age: 94 Year
  Sex: Male
  Weight: 68.9 kg

DRUGS (9)
  1. LEVAQUIN [Suspect]
     Indication: CHOLECYSTITIS ACUTE
     Dosage: 500 MG DAILY IV
     Route: 042
     Dates: start: 20060419, end: 20060421
  2. COLACE [Concomitant]
  3. LASIX [Concomitant]
  4. CARDURA [Concomitant]
  5. GLUCOPHAGE [Concomitant]
  6. COLCHICINE [Concomitant]
  7. IMDUR [Concomitant]
  8. SYNTHROID [Concomitant]
  9. NTG SL [Concomitant]

REACTIONS (2)
  - VENTRICULAR FIBRILLATION [None]
  - VENTRICULAR TACHYCARDIA [None]
